FAERS Safety Report 12864277 (Version 1)
Quarter: 2016Q4

REPORT INFORMATION
  Report Type: Spontaneous
  Country: US (occurrence: US)
  Receive Date: 20161020
  Receipt Date: 20161020
  Transmission Date: 20170207
  Serious: No
  Sender: FDA-Public Use
  Company Number: US-TEVA-683993USA

PATIENT
  Sex: Male
  Weight: 102.15 kg

DRUGS (3)
  1. INSULIN [Concomitant]
     Active Substance: INSULIN NOS
  2. METHOTREXATE. [Suspect]
     Active Substance: METHOTREXATE
     Indication: PSORIASIS
     Dosage: 25 MG/ML, 50 MG, 50MG/2ML
  3. METHOTREXATE. [Suspect]
     Active Substance: METHOTREXATE
     Route: 065

REACTIONS (2)
  - Incorrect route of drug administration [Unknown]
  - Nausea [Unknown]
